FAERS Safety Report 6283700-0 (Version None)
Quarter: 2009Q3

REPORT INFORMATION
  Report Type: 
  Country: None (occurrence: None)
  Receive Date: 20090724
  Receipt Date: 20090716
  Transmission Date: 20100115
  Serious: Yes (Other)
  Sender: FDA-Public Use
  Company Number: ZA-ABBOTT-09P-143-0583989-00

PATIENT
  Sex: Female

DRUGS (3)
  1. HUMIRA [Suspect]
     Indication: CROHN'S DISEASE
     Route: 058
     Dates: start: 20090610, end: 20090610
  2. HUMIRA [Suspect]
     Route: 058
     Dates: start: 20090624, end: 20090624
  3. HUMIRA [Suspect]
     Route: 058
     Dates: start: 20090709, end: 20090709

REACTIONS (16)
  - ABDOMINAL TENDERNESS [None]
  - BLISTER [None]
  - C-REACTIVE PROTEIN INCREASED [None]
  - CHILLS [None]
  - CYTOMEGALOVIRUS INFECTION [None]
  - FAECES DISCOLOURED [None]
  - HEADACHE [None]
  - HERPES ZOSTER [None]
  - INFLUENZA [None]
  - LARYNGITIS [None]
  - NAUSEA [None]
  - POSTNASAL DRIP [None]
  - SEBORRHOEIC DERMATITIS [None]
  - SKIN ULCER [None]
  - VISION BLURRED [None]
  - VOMITING [None]
